FAERS Safety Report 16992778 (Version 3)
Quarter: 2024Q2

REPORT INFORMATION
  Report Type: Other
  Country: US (occurrence: None)
  Receive Date: 20191105
  Receipt Date: 20240520
  Transmission Date: 20240715
  Serious: Yes (Hospitalization, Other)
  Sender: FDA-Public Use
  Company Number: US-ROCHE-2451699

PATIENT
  Age: 57 Year
  Sex: Female
  Weight: 51.756 kg

DRUGS (19)
  1. OCREVUS [Suspect]
     Active Substance: OCRELIZUMAB
     Indication: Primary progressive multiple sclerosis
     Dosage: 300 MG DAY 1 AND DAY 15 THEN 600 MG EVERY 6 MONTHS.?DATE OF TREATMENT: 26/JUN/2018, 10/JUL/2018, 18/
     Route: 042
     Dates: start: 20180618, end: 20190611
  2. OCREVUS [Suspect]
     Active Substance: OCRELIZUMAB
     Indication: Multiple sclerosis
  3. BACLOFEN [Concomitant]
     Active Substance: BACLOFEN
     Indication: Muscle spasticity
     Route: 048
  4. BACLOFEN [Concomitant]
     Active Substance: BACLOFEN
     Indication: Muscle spasms
     Route: 048
  5. GABAPENTIN [Concomitant]
     Active Substance: GABAPENTIN
     Indication: Neuropathy peripheral
     Route: 048
  6. GABAPENTIN [Concomitant]
     Active Substance: GABAPENTIN
     Indication: Pain
  7. MIRABEGRON [Concomitant]
     Active Substance: MIRABEGRON
     Indication: Hypertonic bladder
     Route: 048
  8. ALENDRONATE [Concomitant]
     Active Substance: ALENDRONATE SODIUM
     Indication: Osteoporosis
     Route: 048
  9. PREDNISOLONE ACETATE [Concomitant]
     Active Substance: PREDNISOLONE ACETATE
     Indication: Uveitis
     Dosage: LEFT EYE. STRENGTH IS 1% ; ONGOING: YES
     Route: 047
  10. LOTEPREDNOL ETABONATE [Concomitant]
     Active Substance: LOTEPREDNOL ETABONATE
     Indication: Uveitis
     Dosage: LEFT EYE. STRENGTH IS 1% ; ONGOING: YES
     Route: 047
  11. MYRBETRIQ [Concomitant]
     Active Substance: MIRABEGRON
     Indication: Hypertonic bladder
     Route: 048
  12. FOSAMAX [Concomitant]
     Active Substance: ALENDRONATE SODIUM
  13. PREDNISOLONE [Concomitant]
     Active Substance: PREDNISOLONE
  14. LOTEMAX [Concomitant]
     Active Substance: LOTEPREDNOL ETABONATE
  15. VITAMIN C [Concomitant]
     Active Substance: ASCORBIC ACID
  16. CRANBERRY JUICE [Concomitant]
     Active Substance: CRANBERRY JUICE
  17. D MANNOSE [Concomitant]
  18. BIOTIN [Concomitant]
     Active Substance: BIOTIN
  19. PROLIA [Concomitant]
     Active Substance: DENOSUMAB
     Indication: Osteoarthritis
     Route: 058

REACTIONS (7)
  - Urinary tract infection [Not Recovered/Not Resolved]
  - Weight increased [Unknown]
  - Nasal congestion [Unknown]
  - Hot flush [Unknown]
  - Muscular weakness [Not Recovered/Not Resolved]
  - Clostridium difficile colitis [Recovered/Resolved]
  - Small intestinal obstruction [Recovered/Resolved]

NARRATIVE: CASE EVENT DATE: 20190601
